FAERS Safety Report 8619247-3 (Version None)
Quarter: 2012Q3

REPORT INFORMATION
  Report Type: 
  Country: None (occurrence: None)
  Receive Date: 20120824
  Receipt Date: 20120817
  Transmission Date: 20120928
  Serious: Yes (Other)
  Sender: FDA-Public Use
  Company Number: BR-JNJFOC-20120809722

PATIENT
  Age: 61 Year
  Sex: Male
  Weight: 84 kg

DRUGS (6)
  1. SUFENTANIL CITRATE [Suspect]
     Indication: SPINAL ANAESTHESIA
     Route: 042
  2. BUPIVACAINE HCL [Suspect]
     Indication: SPINAL ANAESTHESIA
     Route: 065
  3. MIDAZOLAM [Suspect]
     Indication: SPINAL ANAESTHESIA
     Route: 042
  4. FENTANYL CITRATE [Suspect]
     Indication: SPINAL ANAESTHESIA
     Route: 037
  5. OXYBUTYNIN [Suspect]
     Indication: HYPERTONIC BLADDER
     Route: 065
  6. SIMVASTATIN [Concomitant]
     Indication: HYPERCHOLESTEROLAEMIA
     Route: 065

REACTIONS (4)
  - URINARY RETENTION [None]
  - DYSURIA [None]
  - INCORRECT ROUTE OF DRUG ADMINISTRATION [None]
  - HAEMATURIA [None]
